FAERS Safety Report 7889388-7 (Version None)
Quarter: 2011Q4

REPORT INFORMATION
  Report Type: 
  Country: None (occurrence: None)
  Receive Date: 20111103
  Receipt Date: 20111025
  Transmission Date: 20120403
  Serious: Yes (Hospitalization)
  Sender: FDA-Public Use
  Company Number: IE-MEDIMMUNE-MEDI-0013792

PATIENT
  Sex: Female
  Weight: 5.88 kg

DRUGS (5)
  1. FUROSEMIDE [Concomitant]
  2. RANITIDINE HYDROCHLORIDE [Concomitant]
  3. SYNAGIS [Suspect]
     Indication: HEART DISEASE CONGENITAL
     Route: 030
     Dates: start: 20111004
  4. CAPTOPRIL [Concomitant]
  5. SILDENAFIL [Concomitant]

REACTIONS (2)
  - HOSPITALISATION [None]
  - IRRITABILITY [None]
